FAERS Safety Report 7533985-5 (Version None)
Quarter: 2011Q2

REPORT INFORMATION
  Report Type: 
  Country: None (occurrence: None)
  Receive Date: 20110608
  Receipt Date: 20060804
  Transmission Date: 20111010
  Serious: Yes (Death, Life-Threatening)
  Sender: FDA-Public Use
  Company Number: PHMT2006CA01618

PATIENT
  Sex: Male

DRUGS (2)
  1. CLOZAPINE [Suspect]
     Dosage: 250 MG, QHS
     Route: 048
     Dates: start: 19980505, end: 20061101
  2. CLOZAPINE [Suspect]
     Indication: SCHIZOPHRENIA
     Dosage: 50 MG, TID
     Route: 048
     Dates: start: 19980505, end: 20061101

REACTIONS (1)
  - MALIGNANT MELANOMA [None]
